FAERS Safety Report 10090105 (Version 1)
Quarter: 2014Q2

REPORT INFORMATION
  Report Type: Spontaneous
  Country: US (occurrence: US)
  Receive Date: 20140421
  Receipt Date: 20140421
  Transmission Date: 20141212
  Serious: No
  Sender: FDA-Public Use
  Company Number: US-PFIZER INC-2014110512

PATIENT
  Age: 65 Year
  Sex: Female
  Weight: 65.76 kg

DRUGS (4)
  1. NEURONTIN [Suspect]
     Indication: BIPOLAR DISORDER
     Dosage: 200 MG, 2X/DAY
     Dates: start: 20140331
  2. NEURONTIN [Suspect]
     Dosage: 200 MG, 3X/DAY
     Dates: start: 20140417
  3. LEVOXYL [Concomitant]
     Indication: HYPOTHYROIDISM
     Dosage: 75 UG, DAILY
  4. ABILIFY [Concomitant]
     Dosage: 30 MG, DAILY

REACTIONS (2)
  - Dizziness [Not Recovered/Not Resolved]
  - Insomnia [Unknown]
